FAERS Safety Report 17282280 (Version 1)
Quarter: 2020Q1

REPORT INFORMATION
  Report Type: Spontaneous
  Country: US (occurrence: US)
  Receive Date: 20200116
  Receipt Date: 20200116
  Transmission Date: 20200409
  Serious: Yes (Hospitalization)
  Sender: FDA-Public Use
  Company Number: None

PATIENT
  Sex: Female
  Weight: 21.8 kg

DRUGS (3)
  1. LORAZEPAM 1 MG TABLETS [Concomitant]
     Dates: start: 20200101
  2. EPIDIOLEX [Suspect]
     Active Substance: CANNABIDIOL
     Indication: EPILEPSY
     Route: 048
     Dates: start: 20190219
  3. CLONAZEPAM 0.5 MG TABLETS [Concomitant]
     Dates: start: 20200110

REACTIONS (2)
  - Infection [None]
  - Influenza [None]
